FAERS Safety Report 11971990 (Version 2)
Quarter: 2016Q2

REPORT INFORMATION
  Report Type: Spontaneous
  Country: US (occurrence: US)
  Receive Date: 20160128
  Receipt Date: 20160629
  Transmission Date: 20160815
  Serious: Yes (Hospitalization, Disabling, Other)
  Sender: FDA-Public Use
  Company Number: US-PFIZER INC-2016045368

PATIENT
  Age: 50 Year
  Sex: Male

DRUGS (3)
  1. DEPO-TESTOSTERONE [Suspect]
     Active Substance: TESTOSTERONE CYPIONATE
     Indication: HORMONE REPLACEMENT THERAPY
     Dosage: UNK, EVERY 4 WEEKS
     Dates: start: 2007, end: 2012
  2. ANDRODERM [Suspect]
     Active Substance: TESTOSTERONE
     Indication: HORMONE REPLACEMENT THERAPY
     Dosage: UNK, ONE PATCH EVERY DAY
     Dates: start: 2012
  3. ANDROGEL [Suspect]
     Active Substance: TESTOSTERONE
     Indication: HORMONE REPLACEMENT THERAPY
     Dosage: UNK, TWO PUMPS EVERY MORNING
     Dates: start: 2008, end: 2013

REACTIONS (14)
  - Disturbance in social behaviour [Unknown]
  - Feelings of worthlessness [Unknown]
  - Marital problem [Unknown]
  - Cerebrovascular accident [Unknown]
  - Mental impairment [Not Recovered/Not Resolved]
  - Stress [Unknown]
  - Depression [Unknown]
  - Heart rate irregular [Unknown]
  - Agitation [Unknown]
  - Physical disability [Not Recovered/Not Resolved]
  - Disturbance in attention [Unknown]
  - Memory impairment [Unknown]
  - Anxiety [Unknown]
  - Panic disorder [Unknown]

NARRATIVE: CASE EVENT DATE: 20100213
